FAERS Safety Report 25066663 (Version 2)
Quarter: 2025Q2

REPORT INFORMATION
  Report Type: Spontaneous
  Country: US (occurrence: US)
  Receive Date: 20250312
  Receipt Date: 20250505
  Transmission Date: 20250717
  Serious: Yes (Death, Other)
  Sender: CHATTEM
  Company Number: US-OPELLA-2025OHG006567

PATIENT
  Sex: Female

DRUGS (1)
  1. GOLD BOND ORIGINAL STRENGTH [Suspect]
     Active Substance: MENTHOL
     Indication: Product used for unknown indication

REACTIONS (4)
  - Peritoneal mesothelioma malignant [Fatal]
  - Exposure to chemical pollution [Fatal]
  - Epithelioid mesothelioma [Fatal]
  - Sarcomatoid mesothelioma [Fatal]
